FAERS Safety Report 17928952 (Version 4)
Quarter: 2020Q3

REPORT INFORMATION
  Report Type: Report from Study
  Country: IT (occurrence: IT)
  Receive Date: 20200623
  Receipt Date: 20200818
  Transmission Date: 20201103
  Serious: Yes (Hospitalization)
  Sender: FDA-Public Use
  Company Number: IT-MYLANLABS-2020M1057121

PATIENT
  Age: 71 Year
  Sex: Female

DRUGS (4)
  1. ENOXAPARIN SODIUM. [Suspect]
     Active Substance: ENOXAPARIN SODIUM
     Indication: CORONAVIRUS INFECTION
     Dosage: 1 DOSAGE FORM, QD
     Route: 058
  2. KALETRA [Suspect]
     Active Substance: LOPINAVIR\RITONAVIR
     Indication: CORONAVIRUS INFECTION
     Dosage: 2 DOSAGE FORM, QD
     Route: 048
     Dates: start: 20200330, end: 20200331
  3. PLAQUENIL [Suspect]
     Active Substance: HYDROXYCHLOROQUINE SULFATE
     Indication: CORONAVIRUS INFECTION
     Dosage: 2 DOSAGE FORM, QD
     Route: 048
     Dates: start: 20200330, end: 20200409
  4. AZITHROMYCIN ANHYDROUS. [Suspect]
     Active Substance: AZITHROMYCIN ANHYDROUS
     Indication: CORONAVIRUS INFECTION
     Dosage: 500 MILLIGRAM, QD
     Route: 048
     Dates: start: 20200330, end: 20200403

REACTIONS (4)
  - Off label use [Recovered/Resolved]
  - Eczema [Recovered/Resolved]
  - Dyshidrotic eczema [Recovered/Resolved]
  - Pruritus [Recovered/Resolved]

NARRATIVE: CASE EVENT DATE: 20200412
